FAERS Safety Report 16499766 (Version 1)
Quarter: 2019Q3

REPORT INFORMATION
  Report Type: Spontaneous
  Country: GB (occurrence: GB)
  Receive Date: 20190701
  Receipt Date: 20190701
  Transmission Date: 20191004
  Serious: Yes (Other)
  Sender: FDA-Public Use
  Company Number: GB-ACCORD-135514

PATIENT
  Age: 69 Year
  Sex: Male
  Weight: 84.36 kg

DRUGS (2)
  1. PRAVASTATIN. [Suspect]
     Active Substance: PRAVASTATIN
     Indication: HYPERCHOLESTEROLAEMIA
     Route: 048
     Dates: start: 20190501, end: 20190526
  2. COLESEVELAM/COLESEVELAM HYDROCHLORIDE [Concomitant]

REACTIONS (2)
  - Insomnia [Recovered/Resolved]
  - Gastrointestinal disorder [Recovered/Resolved with Sequelae]
